FAERS Safety Report 5603398-1 (Version None)
Quarter: 2008Q1

REPORT INFORMATION
  Report Type: 
  Country: None (occurrence: None)
  Receive Date: 20080122
  Receipt Date: 20080107
  Transmission Date: 20080703
  Serious: Yes (Hospitalization)
  Sender: FDA-Public Use
  Company Number: DSA_31273_2008

PATIENT
  Age: 49 Year
  Sex: Female

DRUGS (3)
  1. LORAZEPAM [Suspect]
     Indication: DRUG USE FOR UNKNOWN INDICATION
     Dosage: (3 MG 1X NOT THE PRESCRIBED AMOUNT ORAL
     Route: 048
     Dates: start: 20080104, end: 20080104
  2. LORAZEPAM [Suspect]
     Indication: DRUG USE FOR UNKNOWN INDICATION
     Dosage: (DF ORAL)
     Route: 048
  3. ETHANOL (ALCOHOL - ETHANOL) [Suspect]
     Dosage: NOT THE PRESCRIBED AMOUNT. ORAL
     Route: 048
     Dates: start: 20080104, end: 20080104

REACTIONS (4)
  - ALCOHOL USE [None]
  - DRUG ABUSE [None]
  - SOMNOLENCE [None]
  - VOMITING [None]
